FAERS Safety Report 7415060-3 (Version None)
Quarter: 2011Q2

REPORT INFORMATION
  Report Type: 
  Country: None (occurrence: None)
  Receive Date: 20110414
  Receipt Date: 20110405
  Transmission Date: 20111010
  Serious: Yes (Hospitalization)
  Sender: FDA-Public Use
  Company Number: FR-ROCHE-769621

PATIENT
  Sex: Male

DRUGS (4)
  1. PEGASYS [Suspect]
     Route: 065
     Dates: start: 20101001, end: 20110227
  2. COPEGUS [Concomitant]
     Indication: HEPATITIS C
  3. HYDROCORTISONE [Concomitant]
  4. AVLOCARDYL [Concomitant]

REACTIONS (1)
  - CONVULSION [None]
